FAERS Safety Report 20080243 (Version 2)
Quarter: 2021Q4

REPORT INFORMATION
  Report Type: Spontaneous
  Country: FR (occurrence: FR)
  Receive Date: 20211117
  Receipt Date: 20211122
  Transmission Date: 20220303
  Serious: Yes (Hospitalization, Disabling, Congenital Anomaly, Other)
  Sender: FDA-Public Use
  Company Number: FR-ABBVIE-21K-056-4160396-00

PATIENT
  Sex: Male

DRUGS (2)
  1. VALPROATE SODIUM [Suspect]
     Active Substance: VALPROATE SODIUM
     Indication: Maternal exposure timing unspecified
     Route: 064
  2. VALPROATE SODIUM [Suspect]
     Active Substance: VALPROATE SODIUM
     Indication: Petit mal epilepsy

REACTIONS (71)
  - Anterior chamber cleavage syndrome [Unknown]
  - Congenital joint malformation [Unknown]
  - Clinodactyly [Unknown]
  - Congenital oral malformation [Unknown]
  - Foetal growth restriction [Unknown]
  - Foot deformity [Unknown]
  - Congenital inguinal hernia [Unknown]
  - Congenital astigmatism [Unknown]
  - Sitting disability [Unknown]
  - Ear malformation [Unknown]
  - Congenital scoliosis [Unknown]
  - Nasopharyngitis [Unknown]
  - Deafness congenital [Unknown]
  - Talipes [Unknown]
  - Dysmorphism [Unknown]
  - Foot deformity [Unknown]
  - Plagiocephaly [Unknown]
  - Limb malformation [Unknown]
  - Camptodactyly congenital [Unknown]
  - Congenital nose malformation [Unknown]
  - Vertical talus [Unknown]
  - Congenital myopia [Unknown]
  - Congenital multiplex arthrogryposis [Unknown]
  - Intellectual disability [Unknown]
  - Motor developmental delay [Unknown]
  - Speech disorder developmental [Unknown]
  - Neurodevelopmental disorder [Unknown]
  - Oesophagitis [Unknown]
  - Coagulopathy [Unknown]
  - Behaviour disorder [Unknown]
  - Pharyngeal disorder [Unknown]
  - Limb hypoplasia congenital [Unknown]
  - Hypoacusis [Unknown]
  - Walking disability [Unknown]
  - Arcus lipoides [Unknown]
  - Petit mal epilepsy [Unknown]
  - Pneumonia [Unknown]
  - Intelligence test abnormal [Unknown]
  - Ear infection [Unknown]
  - Muscle tightness [Unknown]
  - Agitation [Unknown]
  - Aggression [Unknown]
  - Anxiety [Unknown]
  - Hypertonia neonatal [Unknown]
  - Visual impairment [Unknown]
  - Motor dysfunction [Unknown]
  - Hypotonia neonatal [Unknown]
  - Psychomotor retardation [Unknown]
  - Nasal disorder [Unknown]
  - Lip disorder [Unknown]
  - Hyperacusis [Unknown]
  - Weight abnormal [Unknown]
  - Hypoacusis [Unknown]
  - Areflexia [Unknown]
  - Joint hyperextension [Unknown]
  - Intentional self-injury [Unknown]
  - Asthma [Unknown]
  - Cyanosis [Unknown]
  - Gastrooesophageal reflux disease [Unknown]
  - Frustration tolerance decreased [Unknown]
  - Polydipsia [Unknown]
  - Polyuria [Unknown]
  - Electroencephalogram abnormal [Unknown]
  - Iris adhesions [Unknown]
  - Eating disorder [Unknown]
  - Pyrexia [Unknown]
  - Cough [Unknown]
  - Weight decreased [Unknown]
  - Tremor [Unknown]
  - Premature baby [Unknown]
  - Foetal exposure during pregnancy [Unknown]

NARRATIVE: CASE EVENT DATE: 20060901
